FAERS Safety Report 20541111 (Version 1)
Quarter: 2022Q1

REPORT INFORMATION
  Report Type: Report from Study
  Country: GB (occurrence: GB)
  Receive Date: 20220302
  Receipt Date: 20220302
  Transmission Date: 20220423
  Serious: Yes (Other)
  Sender: FDA-Public Use
  Company Number: GB-JNJFOC-20211000056

PATIENT
  Age: 8 Decade
  Sex: Female

DRUGS (1)
  1. TREMFYA [Suspect]
     Active Substance: GUSELKUMAB
     Indication: Psoriasis
     Dosage: DELIVERY START DATE-19/03/2021
     Route: 058
     Dates: start: 20210510

REACTIONS (5)
  - Lower respiratory tract infection [Recovered/Resolved]
  - Urinary tract infection [Unknown]
  - Gastrointestinal disorder [Unknown]
  - Arthritis [Unknown]
  - Therapeutic response unexpected [Unknown]

NARRATIVE: CASE EVENT DATE: 20210101
